FAERS Safety Report 16186751 (Version 3)
Quarter: 2019Q2

REPORT INFORMATION
  Report Type: Spontaneous
  Country: US (occurrence: US)
  Receive Date: 20190411
  Receipt Date: 20190514
  Transmission Date: 20190711
  Serious: Yes (Life-Threatening, Hospitalization)
  Sender: FDA-Public Use
  Company Number: US-CONTRACT PHARMACAL CORP-2019CPC00007

PATIENT
  Age: 2 Year
  Sex: Male
  Weight: 16.33 kg

DRUGS (1)
  1. ALLERGY RELIEF (DIPHENHYDRAMINE HYDROCHLORIDE) [Suspect]
     Active Substance: DIPHENHYDRAMINE HYDROCHLORIDE
     Dosage: 500 MG, ONCE
     Route: 048
     Dates: start: 20190325, end: 20190325

REACTIONS (4)
  - Anticholinergic syndrome [Recovered/Resolved]
  - Pain [Unknown]
  - Accidental overdose [Recovered/Resolved]
  - Accidental exposure to product by child [Recovered/Resolved]

NARRATIVE: CASE EVENT DATE: 20190325
